FAERS Safety Report 7418211-X (Version None)
Quarter: 2011Q2

REPORT INFORMATION
  Report Type: 
  Country: None (occurrence: None)
  Receive Date: 20110415
  Receipt Date: 20110411
  Transmission Date: 20111010
  Serious: Yes (Life-Threatening, Hospitalization)
  Sender: FDA-Public Use
  Company Number: GB-ABBOTT-11P-167-0718327-00

PATIENT
  Age: 71 Year
  Sex: Female
  Weight: 81.7 kg

DRUGS (9)
  1. HUMIRA [Suspect]
     Indication: RHEUMATOID ARTHRITIS
     Route: 058
     Dates: start: 20090801, end: 20100801
  2. NEXIUM [Concomitant]
     Indication: PRODUCT USED FOR UNKNOWN INDICATION
  3. ACETAMINOPHEN WITH PROPOXYPHENE HCL TAB [Concomitant]
     Indication: PRODUCT USED FOR UNKNOWN INDICATION
  4. METHOTREXATE [Concomitant]
     Indication: RHEUMATOID ARTHRITIS
     Route: 048
     Dates: end: 20101101
  5. PREDNISOLONE [Concomitant]
     Indication: PRODUCT USED FOR UNKNOWN INDICATION
     Route: 048
  6. LISINOPRIL [Concomitant]
     Indication: PRODUCT USED FOR UNKNOWN INDICATION
     Route: 048
     Dates: end: 20101101
  7. FOLIC ACID [Concomitant]
     Indication: RHEUMATOID ARTHRITIS
     Route: 048
     Dates: end: 20101101
  8. NITROGLYCERIN [Concomitant]
     Indication: PRODUCT USED FOR UNKNOWN INDICATION
  9. CALCIHEW [Concomitant]
     Indication: PRODUCT USED FOR UNKNOWN INDICATION

REACTIONS (12)
  - LOWER RESPIRATORY TRACT INFECTION [None]
  - MALAISE [None]
  - C-REACTIVE PROTEIN INCREASED [None]
  - DYSPNOEA [None]
  - POST PROCEDURAL INFECTION [None]
  - OEDEMA PERIPHERAL [None]
  - HAEMOGLOBIN DECREASED [None]
  - BLOOD ALBUMIN DECREASED [None]
  - ULCER [None]
  - FOCAL SEGMENTAL GLOMERULOSCLEROSIS [None]
  - BACTERIAL INFECTION [None]
  - FOOT OPERATION [None]
